FAERS Safety Report 21852014 (Version 1)
Quarter: 2023Q1

REPORT INFORMATION
  Report Type: Spontaneous
  Country: HR (occurrence: HR)
  Receive Date: 20230112
  Receipt Date: 20230112
  Transmission Date: 20230418
  Serious: Yes (Other)
  Sender: FDA-Public Use
  Company Number: HR-CELLTRION INC.-2023HR000180

PATIENT

DRUGS (8)
  1. TRASTUZUMAB [Suspect]
     Active Substance: TRASTUZUMAB
     Indication: HER2 positive breast cancer
     Dosage: 6 CYCLES EVERY 3 WEEKS
  2. TRASTUZUMAB [Suspect]
     Active Substance: TRASTUZUMAB
     Dosage: ON DAY 1; EVERY 3 WEEKS FOR 9 CYCLES.
  3. CARBOPLATIN [Suspect]
     Active Substance: CARBOPLATIN
     Indication: HER2 positive breast cancer
     Dosage: 6 CYCLES EVERY 3 WEEKS
  4. CARBOPLATIN [Suspect]
     Active Substance: CARBOPLATIN
     Dosage: FOR 9 CYCLES EVERY 3 WEEKS
  5. PACLITAXEL [Suspect]
     Active Substance: PACLITAXEL
     Indication: HER2 positive breast cancer
     Dosage: ON DAY 1 AND 8 FOR 9 CYCLES EVERY 3 WEEKS
  6. DOCETAXEL [Suspect]
     Active Substance: DOCETAXEL
     Indication: HER2 positive breast cancer
     Dosage: 6 CYCLES EVERY 3 WEEKS
  7. PERTUZUMAB [Suspect]
     Active Substance: PERTUZUMAB
     Indication: HER2 positive breast cancer
     Dosage: 6 CYCLES EVERY 3 WEEKS
  8. PERTUZUMAB [Suspect]
     Active Substance: PERTUZUMAB
     Dosage: ON DAY 1 ; EVERY 3 WEEKS FOR 9 CYCLES

REACTIONS (1)
  - Polyneuropathy [Unknown]
